FAERS Safety Report 4639719-6 (Version None)
Quarter: 2005Q2

REPORT INFORMATION
  Report Type: 
  Country: None (occurrence: None)
  Receive Date: 20050328
  Receipt Date: 20041227
  Transmission Date: 20051028
  Serious: No
  Sender: FDA-Public Use
  Company Number: USA041286985

PATIENT
  Sex: Male

DRUGS (1)
  1. STRATTERA [Suspect]
     Dosage: 40 MG DAY
     Dates: start: 20040501

REACTIONS (3)
  - ABDOMINAL PAIN [None]
  - BENIGN PROSTATIC HYPERPLASIA [None]
  - DYSURIA [None]
